FAERS Safety Report 22325732 (Version 1)
Quarter: 2023Q2

REPORT INFORMATION
  Report Type: Report from Study
  Country: GB (occurrence: GB)
  Receive Date: 20230516
  Receipt Date: 20230516
  Transmission Date: 20230722
  Serious: Yes (Other)
  Sender: FDA-Public Use
  Company Number: GB-002147023-NVSC2023GB108341

PATIENT
  Age: 55 Year
  Sex: Female

DRUGS (1)
  1. KESIMPTA [Suspect]
     Active Substance: OFATUMUMAB
     Indication: Multiple sclerosis
     Dosage: 20 MG, OTHER (SHE WAS ON WEEK 1 OF HER WEEKLY TITRATION DOSE)
     Route: 058
     Dates: start: 20230428

REACTIONS (4)
  - Hypoaesthesia [Not Recovered/Not Resolved]
  - Asthenopia [Unknown]
  - Constipation [Recovered/Resolved]
  - Muscle spasms [Recovered/Resolved]

NARRATIVE: CASE EVENT DATE: 20230429
